FAERS Safety Report 6455967-7 (Version None)
Quarter: 2009Q4

REPORT INFORMATION
  Report Type: 
  Country: None (occurrence: None)
  Receive Date: 20091120
  Receipt Date: 20091109
  Transmission Date: 20100525
  Serious: Yes (Disabling)
  Sender: FDA-Public Use
  Company Number: 2009AL007175

PATIENT
  Age: 65 Year
  Sex: Male

DRUGS (8)
  1. CLONAZEPAM [Suspect]
     Dosage: 4 MG;QD
  2. NAPROXEN [Suspect]
     Dosage: 220 MG;QD
  3. LITHIUM [Concomitant]
  4. DOXEPIN HCL [Concomitant]
  5. RIVASTIGMINE [Concomitant]
  6. ATORVASTATIN [Concomitant]
  7. METOPROLOL [Concomitant]
  8. ASPIRIN [Concomitant]

REACTIONS (8)
  - ACTIVITIES OF DAILY LIVING IMPAIRED [None]
  - AMNESIA [None]
  - COGNITIVE DISORDER [None]
  - CONFUSIONAL STATE [None]
  - DEPRESSED MOOD [None]
  - DISORIENTATION [None]
  - FATIGUE [None]
  - MOTOR DYSFUNCTION [None]
